FAERS Safety Report 8146788-8 (Version None)
Quarter: 2012Q1

REPORT INFORMATION
  Report Type: 
  Country: None (occurrence: None)
  Receive Date: 20120217
  Receipt Date: 20110801
  Transmission Date: 20120608
  Serious: No
  Sender: FDA-Public Use
  Company Number: US-ABBOTT-11P-163-0842991-00

PATIENT
  Sex: Male
  Weight: 128.03 kg

DRUGS (5)
  1. PROPOLIS [Concomitant]
     Indication: SUPPLEMENTATION THERAPY
     Route: 048
  2. ASPIRIN [Concomitant]
     Indication: PRODUCT USED FOR UNKNOWN INDICATION
     Dosage: AT NOON
     Route: 048
  3. L-CARNITINE [Concomitant]
     Indication: PRODUCT USED FOR UNKNOWN INDICATION
     Route: 048
  4. SIMCOR [Suspect]
     Indication: BLOOD CHOLESTEROL INCREASED
     Dosage: 500/40MG AT BEDTIME
     Route: 048
  5. SIMCOR [Suspect]

REACTIONS (2)
  - ERYTHEMA [None]
  - HOT FLUSH [None]
